FAERS Safety Report 9017295 (Version 2)
Quarter: 2013Q1

REPORT INFORMATION
  Report Type: Report from Study
  Country: DE (occurrence: DE)
  Receive Date: 20130117
  Receipt Date: 20130124
  Transmission Date: 20140127
  Serious: Yes (Other)
  Sender: FDA-Public Use
  Company Number: DE-CELGENEUS-062-21880-13011768

PATIENT
  Sex: Female
  Weight: 53 kg

DRUGS (22)
  1. REVLIMID [Suspect]
     Indication: PLASMA CELL MYELOMA
     Route: 048
     Dates: start: 20110713, end: 20110802
  2. REVLIMID [Suspect]
     Route: 048
     Dates: start: 20110810, end: 20120117
  3. REVLIMID [Suspect]
     Route: 048
     Dates: start: 20120125, end: 20121223
  4. DEXAMETHASONE [Suspect]
     Indication: PLASMA CELL MYELOMA
     Route: 065
     Dates: start: 20110713, end: 20110802
  5. DEXAMETHASONE [Suspect]
     Route: 065
     Dates: start: 20111021, end: 20120111
  6. DEXAMETHASONE [Suspect]
     Route: 065
     Dates: start: 20120118, end: 20120222
  7. ACIC [Concomitant]
     Indication: ANTIVIRAL PROPHYLAXIS
     Dosage: 1600 MILLIGRAM
     Route: 048
     Dates: start: 20110712
  8. KALINOR RETARD [Concomitant]
     Indication: PROPHYLAXIS
     Dosage: 1200 MILLIGRAM
     Route: 065
     Dates: start: 20111007
  9. MAGNESIUM VERLA [Concomitant]
     Indication: MUSCLE SPASMS
     Route: 048
     Dates: start: 20110714
  10. PANTOZOL [Concomitant]
     Indication: GASTRITIS PROPHYLAXIS
     Dosage: 40 MILLIGRAM
     Route: 048
     Dates: start: 20110712
  11. VIVINOX STARK [Concomitant]
     Indication: SLEEP DISORDER
     Dosage: 50 MILLIGRAM
     Route: 048
     Dates: start: 20110824
  12. ZOMETA [Concomitant]
     Indication: PROPHYLAXIS
     Dosage: .1333 MILLIGRAM
     Route: 041
     Dates: start: 2007
  13. ACETYLCYSTEIN [Concomitant]
     Indication: UPPER RESPIRATORY TRACT INFECTION
     Dosage: 1200 MILLIGRAM
     Route: 048
     Dates: start: 20120404, end: 20120412
  14. ASA [Concomitant]
     Indication: ANTIPLATELET THERAPY
     Dosage: 100 MILLIGRAM
     Route: 048
     Dates: start: 20111008, end: 20120406
  15. ASA [Concomitant]
     Indication: ANTICOAGULANT THERAPY
  16. AVALOX [Concomitant]
     Indication: UPPER RESPIRATORY TRACT INFECTION
     Dosage: 400 MILLIGRAM
     Route: 048
     Dates: start: 20120405, end: 20120412
  17. BETAISDONA  CREME [Concomitant]
     Indication: SKIN DISORDER
     Route: 062
     Dates: start: 20121025, end: 20121107
  18. CIPROBAY [Concomitant]
     Indication: ANTIBIOTIC PROPHYLAXIS
     Dosage: 500 MILLIGRAM
     Route: 048
     Dates: start: 20120403, end: 20120404
  19. CIPROBAY [Concomitant]
     Indication: UPPER RESPIRATORY TRACT INFECTION
     Dosage: 1000 MILLIGRAM
     Route: 048
     Dates: start: 20110712, end: 20110802
  20. CLEXANE [Concomitant]
     Indication: ANTICOAGULANT THERAPY
     Dosage: .4 IU (INTERNATIONAL UNIT)
     Route: 048
     Dates: start: 20110712, end: 20111007
  21. COTRIM FORTE [Concomitant]
     Indication: ANTIBIOTIC PROPHYLAXIS
     Dosage: 2880 MILLIGRAM
     Route: 048
     Dates: start: 20110712, end: 20111130
  22. STILNOX [Concomitant]
     Indication: SLEEP DISORDER
     Dosage: 10 MILLIGRAM
     Route: 048
     Dates: start: 20110727, end: 20110824

REACTIONS (1)
  - Basal cell carcinoma [Recovered/Resolved]
